FAERS Safety Report 8500023-7 (Version None)
Quarter: 2012Q2

REPORT INFORMATION
  Report Type: 
  Country: None (occurrence: None)
  Receive Date: 20120629
  Receipt Date: 20120613
  Transmission Date: 20120825
  Serious: Yes (Hospitalization)
  Sender: FDA-Public Use
  Company Number: 2011080247

PATIENT
  Age: 56 Year
  Sex: Male
  Weight: 77.5651 kg

DRUGS (11)
  1. WARFARIN SODIUM [Suspect]
     Indication: THROMBOSIS PROPHYLAXIS
     Dosage: UNK, (BLINDED) (1 IN 1 D), ORAL
     Route: 048
     Dates: start: 20101007, end: 20110609
  2. WARFARIN SODIUM [Suspect]
     Indication: THROMBOSIS PROPHYLAXIS
     Dosage: UNK, (BLINDED) (1 IN 1 D), ORAL
     Route: 048
     Dates: start: 20110624
  3. AVAPRO [Concomitant]
  4. COREG [Concomitant]
  5. DIGOXIN [Concomitant]
  6. LUNESTA [Concomitant]
  7. DOFETILIDE [Concomitant]
  8. NOVOLOG MIX 70/30 [Concomitant]
  9. TIKOSYN [Concomitant]
  10. TORSEMIDE [Suspect]
     Indication: CARDIAC FAILURE CONGESTIVE
     Dosage: 40 MG (20 MG, 2 IN 1 D), ORAL
     Route: 048
     Dates: start: 20110401, end: 20110617
  11. IRBESARTAN [Concomitant]

REACTIONS (8)
  - DYSPNOEA [None]
  - INCORRECT DOSE ADMINISTERED [None]
  - LACERATION [None]
  - TRAUMATIC HAEMATOMA [None]
  - HYPOVOLAEMIA [None]
  - FALL [None]
  - SYNCOPE [None]
  - DIZZINESS [None]
